FAERS Safety Report 16379986 (Version 6)
Quarter: 2019Q2

REPORT INFORMATION
  Report Type: Spontaneous
  Country: FR (occurrence: FR)
  Receive Date: 20190531
  Receipt Date: 20190621
  Transmission Date: 20190711
  Serious: Yes (Other)
  Sender: FDA-Public Use
  Company Number: FR-009507513-1905FRA009651

PATIENT
  Age: 51 Year
  Sex: Female
  Weight: 85 kg

DRUGS (10)
  1. ANDROCUR [Suspect]
     Active Substance: CYPROTERONE ACETATE
     Dosage: 1 DF, QD
     Route: 048
     Dates: start: 200605, end: 201808
  2. VARNOLINE [Suspect]
     Active Substance: DESOGESTREL\ETHINYL ESTRADIOL
     Indication: POLYCYSTIC OVARIES
     Dosage: UNK
     Route: 048
     Dates: start: 199206, end: 199903
  3. CLOMID [Suspect]
     Active Substance: CLOMIPHENE CITRATE
     Indication: CONTROLLED OVARIAN STIMULATION
     Dosage: UNK
     Route: 048
     Dates: start: 1993, end: 1997
  4. ANDROCUR [Suspect]
     Active Substance: CYPROTERONE ACETATE
     Dosage: 1 DF, QD
     Route: 048
     Dates: start: 1998
  5. DIANE (CYPROTERONE ACETATE\ETHINYL ESTRADIOL) [Suspect]
     Active Substance: CYPROTERONE ACETATE\ETHINYL ESTRADIOL
     Indication: POLYCYSTIC OVARIES
     Dosage: UNK
     Route: 048
     Dates: start: 1992
  6. ANDROCUR [Suspect]
     Active Substance: CYPROTERONE ACETATE
     Indication: POLYCYSTIC OVARIES
     Dosage: 1 DOSAGE FORMS (1 CYCLICAL)
     Route: 048
     Dates: start: 199206, end: 201809
  7. LUTERAN [Suspect]
     Active Substance: CHLORMADINONE ACETATE
     Indication: POLYCYSTIC OVARIES
     Dosage: 10 MG, UNK
     Route: 048
     Dates: start: 199910, end: 200505
  8. ESTRADIOL. [Suspect]
     Active Substance: ESTRADIOL
     Indication: POLYCYSTIC OVARIES
     Dosage: 1 DF, UNK
     Route: 062
     Dates: start: 201809, end: 201903
  9. DIANE (CYPROTERONE ACETATE\ETHINYL ESTRADIOL) [Suspect]
     Active Substance: CYPROTERONE ACETATE\ETHINYL ESTRADIOL
     Dosage: UNK
     Route: 048
     Dates: start: 199903, end: 199910
  10. PROGESTERONE. [Suspect]
     Active Substance: PROGESTERONE
     Indication: POLYCYSTIC OVARIES
     Dosage: 1 DF, UNK
     Route: 048
     Dates: start: 201809, end: 201903

REACTIONS (1)
  - Meningioma [Not Recovered/Not Resolved]

NARRATIVE: CASE EVENT DATE: 20190305
